FAERS Safety Report 7333108-1 (Version None)
Quarter: 2011Q1

REPORT INFORMATION
  Report Type: 
  Country: None (occurrence: None)
  Receive Date: 20110222
  Receipt Date: 20110214
  Transmission Date: 20110831
  Serious: Yes (Other)
  Sender: FDA-Public Use
  Company Number: 2011SP007060

PATIENT
  Age: 60 Year
  Sex: Male

DRUGS (3)
  1. MIRTAZAPINE [Suspect]
     Indication: DEPRESSION
     Dosage: 7.5 M;ONCE;PO
     Route: 048
  2. PAROXETINE HCL [Concomitant]
  3. HYDROCHLORIDE HYDRATE [Concomitant]

REACTIONS (3)
  - FALL [None]
  - DELIRIUM [None]
  - FRACTURE [None]
